FAERS Safety Report 23406592 (Version 5)
Quarter: 2024Q1

REPORT INFORMATION
  Report Type: Spontaneous
  Country: PL (occurrence: PL)
  Receive Date: 20240116
  Receipt Date: 20240205
  Transmission Date: 20240410
  Serious: Yes (Hospitalization)
  Sender: FDA-Public Use
  Company Number: PL-MYLANLABS-2024M1003358

PATIENT
  Age: 58 Year
  Sex: Female

DRUGS (7)
  1. HYDROCHLOROTHIAZIDE\TELMISARTAN [Suspect]
     Active Substance: HYDROCHLOROTHIAZIDE\TELMISARTAN
     Indication: Product used for unknown indication
     Dosage: UNK
     Route: 065
  2. TELMISARTAN [Suspect]
     Active Substance: TELMISARTAN
     Indication: Blood pressure increased
     Dosage: UNK
     Route: 065
  3. INDAPAMIDE [Suspect]
     Active Substance: INDAPAMIDE
     Indication: Blood pressure increased
     Dosage: UNK
     Route: 065
  4. HYDROCHLOROTHIAZIDE [Suspect]
     Active Substance: HYDROCHLOROTHIAZIDE
     Indication: Blood pressure increased
     Dosage: UNK
     Route: 065
  5. ASPIRIN [Concomitant]
     Active Substance: ASPIRIN
     Indication: Product used for unknown indication
     Dosage: UNK
     Route: 065
  6. NEBIVOLOL [Concomitant]
     Active Substance: NEBIVOLOL
     Indication: Heart rate increased
     Dosage: 10 MILLIGRAM
     Route: 065
  7. ESCITALOPRAM [Concomitant]
     Active Substance: ESCITALOPRAM OXALATE
     Indication: Anxiety
     Dosage: 10 MILLIGRAM
     Route: 065

REACTIONS (16)
  - Exercise tolerance decreased [Unknown]
  - Dyspnoea exertional [Unknown]
  - Blood pressure ambulatory increased [Unknown]
  - Therapeutic product effect incomplete [Recovered/Resolved]
  - Anxiety [Unknown]
  - Ventricular extrasystoles [Unknown]
  - Micturition urgency [Unknown]
  - Tension [Unknown]
  - Pollakiuria [Unknown]
  - Hypertension [Unknown]
  - Palpitations [Unknown]
  - Dyspnoea [Unknown]
  - Restlessness [Unknown]
  - Myalgia [Unknown]
  - Headache [Unknown]
  - Insomnia [Unknown]
